FAERS Safety Report 11467565 (Version 1)
Quarter: 2015Q3

REPORT INFORMATION
  Report Type: Spontaneous
  Country: GB (occurrence: None)
  Receive Date: 20150903
  Receipt Date: 20150903
  Transmission Date: 20151125
  Serious: Yes (Other)
  Sender: FDA-Public Use
  Company Number: CC400268196

PATIENT
  Age: 24 Year
  Sex: Female

DRUGS (2)
  1. SODIUM CHLORIDE 0.9% [Suspect]
     Active Substance: SODIUM CHLORIDE
     Indication: CROHN^S DISEASE
     Route: 042
     Dates: start: 201306, end: 20150731
  2. INFLIXIMAB [Concomitant]
     Active Substance: INFLIXIMAB

REACTIONS (4)
  - Flushing [None]
  - Dyspnoea [None]
  - Chest discomfort [None]
  - Infusion related reaction [None]
